FAERS Safety Report 16575407 (Version 2)
Quarter: 2019Q3

REPORT INFORMATION
  Report Type: Report from Study
  Country: DO (occurrence: DO)
  Receive Date: 20190716
  Receipt Date: 20190801
  Transmission Date: 20191004
  Serious: Yes (Hospitalization)
  Sender: FDA-Public Use
  Company Number: PHHY2019DO161784

PATIENT
  Sex: Female
  Weight: 56 kg

DRUGS (1)
  1. EXJADE [Suspect]
     Active Substance: DEFERASIROX
     Indication: SICKLE CELL DISEASE
     Dosage: 500 MG, (1 AT NIGHT AND 1 DURING THE DAY)
     Route: 065

REACTIONS (5)
  - Pain [Recovering/Resolving]
  - Pyrexia [Unknown]
  - Cough [Unknown]
  - Pneumonia [Recovering/Resolving]
  - Influenza [Recovering/Resolving]
